FAERS Safety Report 12590330 (Version 1)
Quarter: 2016Q3

REPORT INFORMATION
  Report Type: Report from Study
  Country: US (occurrence: US)
  Receive Date: 20160725
  Receipt Date: 20160725
  Transmission Date: 20161109
  Serious: Yes (Death)
  Sender: FDA-Public Use
  Company Number: US-ACTELION-A-US2016-139447

PATIENT
  Age: 66 Year
  Sex: Female

DRUGS (14)
  1. AMLODIPINE [Concomitant]
     Active Substance: AMLODIPINE BESYLATE
  2. HYDROCODONE BITARTRATE AND ACETAMINOPHEN [Concomitant]
     Active Substance: ACETAMINOPHEN\HYDROCODONE BITARTRATE
  3. FELODIPINE. [Concomitant]
     Active Substance: FELODIPINE
  4. DUREZOL [Concomitant]
     Active Substance: DIFLUPREDNATE
     Dosage: UNK GTT, UNK
  5. MYCOPHENOLATE [Concomitant]
     Active Substance: MYCOPHENOLIC ACID
  6. ADVAIR HFA [Concomitant]
     Active Substance: FLUTICASONE PROPIONATE\SALMETEROL XINAFOATE
  7. FUROSEMIDE. [Concomitant]
     Active Substance: FUROSEMIDE
  8. PREDNISONE. [Concomitant]
     Active Substance: PREDNISONE
  9. BUMETANIDE. [Concomitant]
     Active Substance: BUMETANIDE
  10. BROMFENAC [Concomitant]
     Active Substance: BROMFENAC SODIUM
  11. VENTOLIN [Concomitant]
     Active Substance: ALBUTEROL SULFATE
  12. OPSUMIT [Suspect]
     Active Substance: MACITENTAN
     Indication: PRODUCT USED FOR UNKNOWN INDICATION
     Dosage: 10 MG, QD
     Route: 048
  13. SILDENAFIL. [Concomitant]
     Active Substance: SILDENAFIL
  14. WARFARIN [Concomitant]
     Active Substance: WARFARIN

REACTIONS (1)
  - Death [Fatal]

NARRATIVE: CASE EVENT DATE: 20160630
